FAERS Safety Report 17823060 (Version 1)
Quarter: 2020Q2

REPORT INFORMATION
  Report Type: Spontaneous
  Country: US (occurrence: US)
  Receive Date: 20200524
  Receipt Date: 20200524
  Transmission Date: 20200714
  Serious: Yes (Other)
  Sender: FDA-Public Use
  Company Number: None

PATIENT
  Age: 81 Year
  Sex: Female
  Weight: 41.9 kg

DRUGS (5)
  1. HYDRALAZINE 25 MG [Concomitant]
     Active Substance: HYDRALAZINE HYDROCHLORIDE
     Dates: start: 20200521, end: 20200523
  2. BISOPROLOL 5 MG [Concomitant]
     Active Substance: BISOPROLOL
     Dates: start: 20200521, end: 20200524
  3. DILTIAZEM ER 30 MG [Concomitant]
     Dates: start: 20200522, end: 20200523
  4. REMDESIVIR. [Suspect]
     Active Substance: REMDESIVIR
     Indication: COVID-19
     Dosage: ?          OTHER FREQUENCY:ONCE THEN 100 MGX4;?
     Route: 041
  5. LOSARTAN 100 MG [Concomitant]
     Active Substance: LOSARTAN
     Dates: start: 20200522, end: 20200523

REACTIONS (1)
  - Hypotension [None]

NARRATIVE: CASE EVENT DATE: 20200523
